FAERS Safety Report 7680559-1 (Version None)
Quarter: 2011Q3

REPORT INFORMATION
  Report Type: 
  Country: None (occurrence: None)
  Receive Date: 20110812
  Receipt Date: 20110809
  Transmission Date: 20111222
  Serious: Yes (Hospitalization, Other)
  Sender: FDA-Public Use
  Company Number: US-B.I. PHARMACEUTICALS,INC./RIDGEFIELD-2011-BP-13151BP

PATIENT
  Age: 78 Year
  Sex: Female

DRUGS (5)
  1. LEXAPRO [Concomitant]
  2. TOPROL-XL [Concomitant]
  3. PREVACID [Concomitant]
  4. PRADAXA [Suspect]
     Indication: ATRIAL FIBRILLATION
     Dates: end: 20110301
  5. METFORMIN HCL [Concomitant]

REACTIONS (3)
  - DEPRESSION [None]
  - SUICIDAL IDEATION [None]
  - GASTROINTESTINAL HAEMORRHAGE [None]
